FAERS Safety Report 5930422-9 (Version None)
Quarter: 2008Q4

REPORT INFORMATION
  Report Type: 
  Country: None (occurrence: None)
  Receive Date: 20081021
  Receipt Date: 20081009
  Transmission Date: 20090506
  Serious: Yes (Hospitalization)
  Sender: FDA-Public Use
  Company Number: 2008BI027000

PATIENT
  Age: 45 Year
  Sex: Female
  Weight: 57.6068 kg

DRUGS (9)
  1. TYSABRI [Suspect]
     Indication: MULTIPLE SCLEROSIS
     Dosage: 300 MG; QW; IV
     Route: 042
     Dates: start: 20071017, end: 20080714
  2. FLAXSEED OIL [Concomitant]
  3. LEXAPRO [Concomitant]
  4. M.V.I. [Concomitant]
  5. DETROL LA [Concomitant]
  6. PROTONIX [Concomitant]
  7. AMBIEN CR [Concomitant]
  8. METHYLPREDNISOLONE [Concomitant]
  9. AVONEX [Concomitant]

REACTIONS (11)
  - ASTHENIA [None]
  - AV DISSOCIATION [None]
  - CONFUSIONAL STATE [None]
  - CONVULSION [None]
  - HYPOTENSION [None]
  - LOSS OF CONSCIOUSNESS [None]
  - MULTIPLE SCLEROSIS RELAPSE [None]
  - MUSCULOSKELETAL STIFFNESS [None]
  - SINUS BRADYCARDIA [None]
  - SYNCOPE [None]
  - URINARY INCONTINENCE [None]
